FAERS Safety Report 8458583-0 (Version None)
Quarter: 2012Q2

REPORT INFORMATION
  Report Type: 
  Country: None (occurrence: None)
  Receive Date: 20120622
  Receipt Date: 20120614
  Transmission Date: 20120825
  Serious: Yes (Death)
  Sender: FDA-Public Use
  Company Number: US-JNJFOC-20120506946

PATIENT
  Age: 34 Year
  Sex: Female
  Weight: 53.07 kg

DRUGS (2)
  1. PREDNISONE TAB [Concomitant]
     Indication: ASTHMA
     Route: 048
  2. LEVAQUIN [Suspect]
     Indication: BRONCHITIS
     Route: 048
     Dates: start: 20110415

REACTIONS (10)
  - PAIN [None]
  - RESPIRATORY DISTRESS [None]
  - ANXIETY [None]
  - PANIC DISORDER [None]
  - CARDIAC ARREST [None]
  - DISCOMFORT [None]
  - DEATH [None]
  - MULTI-ORGAN FAILURE [None]
  - FEAR [None]
  - DRUG PRESCRIBING ERROR [None]
